FAERS Safety Report 13377156 (Version 1)
Quarter: 2017Q1

REPORT INFORMATION
  Report Type: Spontaneous
  Country: JP (occurrence: JP)
  Receive Date: 20170328
  Receipt Date: 20170328
  Transmission Date: 20170429
  Serious: Yes (Hospitalization)
  Sender: FDA-Public Use
  Company Number: JP-MYLANLABS-2017M1018340

PATIENT

DRUGS (4)
  1. VALPROIC ACID. [Suspect]
     Active Substance: VALPROIC ACID
     Dosage: 800 MG/DAY
     Route: 065
  2. LEVODOPA [Concomitant]
     Active Substance: LEVODOPA
     Indication: BIPOLAR DISORDER
     Route: 065
  3. VALPROIC ACID. [Suspect]
     Active Substance: VALPROIC ACID
     Indication: BIPOLAR DISORDER
     Dosage: 1000 MG/DAY; THE DOSE WAS FURTHER REDUCED TO 800 MG/DAY
     Route: 065
  4. PEROSPIRONE [Concomitant]
     Active Substance: PEROSPIRONE
     Indication: BIPOLAR DISORDER
     Dosage: 20 MG/DAY
     Route: 065

REACTIONS (1)
  - Parkinsonism [Recovering/Resolving]
